FAERS Safety Report 18665049 (Version 2)
Quarter: 2021Q1

REPORT INFORMATION
  Report Type: Report from Study
  Country: US (occurrence: US)
  Receive Date: 20201225
  Receipt Date: 20210120
  Transmission Date: 20210419
  Serious: Yes (Hospitalization, Other)
  Sender: FDA-Public Use
  Company Number: US-SHIRE-US202033118

PATIENT
  Sex: Female
  Weight: 81.63 kg

DRUGS (32)
  1. CBD [Concomitant]
     Active Substance: CANNABIDIOL
  2. OMEPRAZOLE. [Concomitant]
     Active Substance: OMEPRAZOLE
  3. CALCIUM PLUS D3 [Concomitant]
  4. MAGNESIUM [Concomitant]
     Active Substance: MAGNESIUM
  5. FAMOTIDINE. [Concomitant]
     Active Substance: FAMOTIDINE
  6. METOLAZONE. [Concomitant]
     Active Substance: METOLAZONE
  7. HUMAN NORMAL IMMUNOGLOBULIN; LIQUID [Suspect]
     Active Substance: HUMAN IMMUNOGLOBULIN G
     Indication: IMMUNODEFICIENCY COMMON VARIABLE
     Dosage: 30 GRAM, Q3WEEKS
     Route: 042
     Dates: start: 20190916
  8. WIXELA INHUB [Concomitant]
     Active Substance: FLUTICASONE PROPIONATE\SALMETEROL XINAFOATE
  9. ACETAMINOPHEN. [Concomitant]
     Active Substance: ACETAMINOPHEN
  10. LOSARTAN. [Concomitant]
     Active Substance: LOSARTAN
  11. VENTOLIN HFA [Concomitant]
     Active Substance: ALBUTEROL SULFATE
  12. ATORVASTATIN [Concomitant]
     Active Substance: ATORVASTATIN
  13. GABAPENTIN. [Concomitant]
     Active Substance: GABAPENTIN
  14. LIDOCAINE. [Concomitant]
     Active Substance: LIDOCAINE
  15. PREMPRO [Concomitant]
     Active Substance: ESTROGENS, CONJUGATED\MEDROXYPROGESTERONE ACETATE
  16. MULTIVITAMINS [VITAMINS NOS] [Concomitant]
     Active Substance: VITAMINS
  17. PREDNISONE. [Concomitant]
     Active Substance: PREDNISONE
  18. VERAPAMIL [Concomitant]
     Active Substance: VERAPAMIL HYDROCHLORIDE
  19. DIPHENHYDRAMINE. [Concomitant]
     Active Substance: DIPHENHYDRAMINE
  20. LASIX [Concomitant]
     Active Substance: FUROSEMIDE
  21. METFORMIN [Concomitant]
     Active Substance: METFORMIN HYDROCHLORIDE
  22. AMILORIDE [Concomitant]
     Active Substance: AMILORIDE
  23. FLUAD NOS [Concomitant]
     Active Substance: INFLUENZA VIRUS VACCINE
  24. EPINEPHRINE. [Concomitant]
     Active Substance: EPINEPHRINE
  25. SODIUM CHLORIDE. [Concomitant]
     Active Substance: SODIUM CHLORIDE
  26. NYSTATIN. [Concomitant]
     Active Substance: NYSTATIN
  27. BIOFREEZE [Concomitant]
     Active Substance: MENTHOL
  28. COMBIVENT [Concomitant]
     Active Substance: ALBUTEROL SULFATE\IPRATROPIUM BROMIDE
  29. IPRATROPIUM [Concomitant]
     Active Substance: IPRATROPIUM
  30. NORCO [Concomitant]
     Active Substance: ACETAMINOPHEN\HYDROCODONE BITARTRATE
  31. FOSAMAX [Concomitant]
     Active Substance: ALENDRONATE SODIUM
  32. KLOR?CON [Concomitant]
     Active Substance: POTASSIUM CHLORIDE

REACTIONS (2)
  - Cataract [Unknown]
  - Pneumonia [Unknown]
